FAERS Safety Report 17978565 (Version 1)
Quarter: 2020Q3

REPORT INFORMATION
  Report Type: Report from Study
  Country: None (occurrence: AR)
  Receive Date: 20200703
  Receipt Date: 20200703
  Transmission Date: 20201103
  Serious: Yes (Death, Other)
  Sender: FDA-Public Use
  Company Number: AR-ABBVIE-20K-007-3469754-00

PATIENT
  Age: 52 Year
  Sex: Male

DRUGS (1)
  1. HUMIRA [Suspect]
     Active Substance: ADALIMUMAB
     Indication: HIDRADENITIS
     Route: 058
     Dates: start: 20151001

REACTIONS (2)
  - Disease complication [Unknown]
  - Cardio-respiratory arrest [Fatal]

NARRATIVE: CASE EVENT DATE: 20200524
